FAERS Safety Report 9784217 (Version 1)
Quarter: 2013Q4

REPORT INFORMATION
  Report Type: Spontaneous
  Country: GB (occurrence: GB)
  Receive Date: 20131226
  Receipt Date: 20131226
  Transmission Date: 20140711
  Serious: Yes (Disabling, Other)
  Sender: FDA-Public Use
  Company Number: GB-TEVA-452657ISR

PATIENT
  Age: 33 Year
  Sex: Male
  Weight: 59.8 kg

DRUGS (3)
  1. MIRTAZAPINE [Suspect]
     Indication: ANXIETY
     Dosage: 45 MILLIGRAM DAILY;
     Route: 048
     Dates: start: 20130513, end: 20131101
  2. IBUPROFEN [Concomitant]
  3. PARACETAMOL [Concomitant]

REACTIONS (3)
  - Hypoaesthesia oral [Not Recovered/Not Resolved]
  - Hypoaesthesia [Not Recovered/Not Resolved]
  - Paraesthesia [Not Recovered/Not Resolved]
